FAERS Safety Report 4777767-6 (Version None)
Quarter: 2005Q3

REPORT INFORMATION
  Report Type: 
  Country: None (occurrence: None)
  Receive Date: 20050922
  Receipt Date: 20050919
  Transmission Date: 20060218
  Serious: Yes (Other)
  Sender: FDA-Public Use
  Company Number: 005684

PATIENT
  Age: 65 Year
  Sex: Female

DRUGS (3)
  1. MEDROXYPROGESTERONE ACETATE [Suspect]
     Dosage: ORAL
     Route: 048
     Dates: start: 19950101, end: 20030101
  2. PROVERA [Suspect]
     Dosage: ORAL
     Route: 048
     Dates: start: 19950101, end: 20030101
  3. PREMARIN [Suspect]
     Dosage: ORAL
     Route: 048
     Dates: start: 19950101, end: 20030101

REACTIONS (1)
  - BREAST CANCER FEMALE [None]
